FAERS Safety Report 12725769 (Version 2)
Quarter: 2016Q4

REPORT INFORMATION
  Report Type: Spontaneous
  Country: IT (occurrence: IT)
  Receive Date: 20160908
  Receipt Date: 20161003
  Transmission Date: 20170207
  Serious: Yes (Hospitalization, Other)
  Sender: FDA-Public Use
  Company Number: IT-BRISTOL-MYERS SQUIBB COMPANY-BMS-2016-072735

PATIENT
  Age: 48 Year

DRUGS (1)
  1. NIVOLUMAB [Suspect]
     Active Substance: NIVOLUMAB
     Indication: NON-SMALL CELL LUNG CANCER
     Dosage: 207 MG, UNK
     Route: 042
     Dates: start: 20150728, end: 20160812

REACTIONS (5)
  - Spinal laminectomy [Unknown]
  - Spinal fracture [Unknown]
  - Fall [Unknown]
  - Extradural neoplasm [Unknown]
  - Paresis [Unknown]

NARRATIVE: CASE EVENT DATE: 20160830
